FAERS Safety Report 6031161-9 (Version None)
Quarter: 2008Q4

REPORT INFORMATION
  Report Type: 
  Country: None (occurrence: None)
  Receive Date: 20081222
  Receipt Date: 20080905
  Transmission Date: 20090506
  Serious: No
  Sender: FDA-Public Use
  Company Number: US-WYE-H05934008

PATIENT
  Age: 34 Year
  Sex: Female
  Weight: 52.21 kg

DRUGS (1)
  1. PRISTIQ [Suspect]
     Indication: DEPRESSION
     Dosage: 50 MG 1X PER 1 DAY, ORAL
     Route: 048
     Dates: start: 20080902

REACTIONS (3)
  - ANXIETY [None]
  - MIDDLE INSOMNIA [None]
  - NERVOUSNESS [None]
